FAERS Safety Report 9704926 (Version 2)
Quarter: 2013Q4

REPORT INFORMATION
  Report Type: Report from Study
  Country: CA (occurrence: CA)
  Receive Date: 20131122
  Receipt Date: 20131126
  Transmission Date: 20140711
  Serious: Yes (Other)
  Sender: FDA-Public Use
  Company Number: CA-ABBVIE-13P-028-1169698-00

PATIENT
  Age: 53 Year
  Sex: Male
  Weight: 152.09 kg

DRUGS (4)
  1. HUMIRA [Suspect]
     Indication: PSORIASIS
     Route: 058
     Dates: start: 201111
  2. HUMIRA [Suspect]
     Route: 058
     Dates: start: 20120520, end: 20120901
  3. STELARA [Concomitant]
     Indication: PSORIASIS
     Dates: start: 20121120
  4. DAIVOBET [Concomitant]
     Dates: start: 200805

REACTIONS (1)
  - Prostatitis [Not Recovered/Not Resolved]
